FAERS Safety Report 5070978-4 (Version None)
Quarter: 2006Q3

REPORT INFORMATION
  Report Type: 
  Country: None (occurrence: None)
  Receive Date: 20060804
  Receipt Date: 20060724
  Transmission Date: 20061208
  Serious: Yes (Other)
  Sender: FDA-Public Use
  Company Number: US-JNJFOC-20060501803

PATIENT
  Sex: Female
  Weight: 56.7 kg

DRUGS (5)
  1. REMICADE [Suspect]
     Route: 042
  2. REMICADE [Suspect]
     Dosage: 41 INFUSIONS ON UNKNOWN DATES
     Route: 042
  3. REMICADE [Suspect]
     Route: 042
  4. REMICADE [Suspect]
     Route: 042
  5. REMICADE [Suspect]
     Indication: MIXED CONNECTIVE TISSUE DISEASE
     Route: 042

REACTIONS (3)
  - ARTHROPATHY [None]
  - PNEUMONIA LEGIONELLA [None]
  - TRIGGER FINGER [None]
